FAERS Safety Report 5220886-0 (Version None)
Quarter: 2007Q1

REPORT INFORMATION
  Report Type: 
  Country: None (occurrence: None)
  Receive Date: 20070126
  Receipt Date: 20070118
  Transmission Date: 20070707
  Serious: Yes (Death, Hospitalization)
  Sender: FDA-Public Use
  Company Number: 200611148BFR

PATIENT
  Age: 79 Year
  Sex: Female

DRUGS (19)
  1. FORTUM [Suspect]
     Indication: SEPSIS
     Dosage: 4G PER DAY
     Route: 042
     Dates: start: 20061026, end: 20061108
  2. CIPROFLOXACIN [Suspect]
     Indication: SEPSIS
     Dosage: 1200MG PER DAY
     Route: 042
     Dates: start: 20061026, end: 20061108
  3. VITAMIN B1 B6 [Suspect]
     Indication: DRUG USE FOR UNKNOWN INDICATION
     Route: 065
  4. VANCOMYCIN [Suspect]
     Indication: SEPSIS
     Dosage: 2G PER DAY
     Route: 042
     Dates: start: 20061019, end: 20061108
  5. AMOXICILLIN [Concomitant]
     Indication: SEPSIS
     Dosage: 6G PER DAY
     Route: 065
     Dates: start: 20061010, end: 20061019
  6. ROCEPHIN [Concomitant]
     Indication: SEPSIS
     Route: 042
     Dates: start: 20061019
  7. ZYVOX [Concomitant]
     Indication: SEPSIS
     Route: 042
     Dates: start: 20061019, end: 20061026
  8. APROVEL [Concomitant]
     Route: 065
  9. CORDARONE [Concomitant]
     Route: 065
  10. INIPOMP [Concomitant]
     Route: 065
  11. ACTONEL [Concomitant]
     Route: 065
  12. LOVENOX [Concomitant]
     Route: 065
  13. LASIX [Concomitant]
     Route: 065
  14. ASPIRIN [Concomitant]
     Route: 065
  15. TRAMADOL HCL [Concomitant]
     Route: 065
  16. UNKNOWN DRUG [Concomitant]
     Route: 065
  17. VITAMINS [Concomitant]
     Route: 065
  18. UNKNOWN DRUG [Concomitant]
     Route: 065
  19. SODIUM CHLORIDE [Concomitant]
     Route: 065

REACTIONS (7)
  - ANURIA [None]
  - DEATH [None]
  - ESCHAR [None]
  - FUNGAL INFECTION [None]
  - GENERAL PHYSICAL HEALTH DETERIORATION [None]
  - RASH ERYTHEMATOUS [None]
  - RENAL FAILURE ACUTE [None]
